FAERS Safety Report 8315192-1 (Version None)
Quarter: 2012Q2

REPORT INFORMATION
  Report Type: 
  Country: None (occurrence: None)
  Receive Date: 20120426
  Receipt Date: 20120416
  Transmission Date: 20120825
  Serious: Yes (Other)
  Sender: FDA-Public Use
  Company Number: AT-GLAXOSMITHKLINE-B0798180A

PATIENT
  Age: 21 Year
  Sex: Female
  Weight: 65 kg

DRUGS (9)
  1. ROCURONIUM BROMIDE [Suspect]
     Indication: ANAESTHESIA
     Route: 065
  2. NITROUS OXIDE (IN OXYGEN) [Suspect]
     Route: 065
  3. GLYCOPYRROLATE [Suspect]
     Route: 065
  4. RANITIDINE [Suspect]
     Indication: ANAESTHESIA
     Route: 065
  5. DICLOFENAC SODIUM [Suspect]
     Indication: ANAESTHESIA
     Route: 065
  6. MIDAZOLAM [Suspect]
     Indication: ANAESTHESIA
     Route: 048
  7. FENTANYL [Suspect]
     Indication: ANAESTHESIA
     Route: 065
  8. PROPOFOL [Suspect]
     Indication: ANAESTHESIA
     Route: 065
  9. NEOSTIGMINE [Suspect]
     Route: 065

REACTIONS (2)
  - ATRIOVENTRICULAR DISSOCIATION [None]
  - DRUG INTERACTION [None]
